FAERS Safety Report 14176124 (Version 2)
Quarter: 2017Q4

REPORT INFORMATION
  Report Type: Report from Study
  Country: US (occurrence: US)
  Receive Date: 20171109
  Receipt Date: 20171117
  Transmission Date: 20180321
  Serious: Yes (Hospitalization)
  Sender: FDA-Public Use
  Company Number: US-ACTELION-A-NJ2017-159040

PATIENT
  Age: 76 Year
  Sex: Female
  Weight: 63.39 kg

DRUGS (2)
  1. NIFEDIPINE. [Concomitant]
     Active Substance: NIFEDIPINE
  2. UPTRAVI [Suspect]
     Active Substance: SELEXIPAG
     Indication: PULMONARY ARTERIAL HYPERTENSION
     Dosage: 200 MCG, BID
     Route: 048
     Dates: start: 201708, end: 201710

REACTIONS (7)
  - Pancreatitis acute [Recovered/Resolved]
  - Nail discolouration [Recovered/Resolved]
  - Pneumonia [Unknown]
  - Drug tolerance decreased [Unknown]
  - Headache [Unknown]
  - Abdominal pain [Recovered/Resolved]
  - Feeling abnormal [Unknown]
